FAERS Safety Report 18570794 (Version 7)
Quarter: 2021Q4

REPORT INFORMATION
  Report Type: Report from Study
  Country: US (occurrence: US)
  Receive Date: 20201202
  Receipt Date: 20211005
  Transmission Date: 20220303
  Serious: Yes (Other)
  Sender: FDA-Public Use
  Company Number: US-TAKEDA-2020TUS052478

PATIENT
  Sex: Female
  Weight: 82 kg

DRUGS (76)
  1. CUVITRU [Suspect]
     Active Substance: HUMAN IMMUNOGLOBULIN G
     Indication: Hypogammaglobulinaemia
     Dosage: 22 GRAM
     Route: 058
     Dates: start: 20170907
  2. CUVITRU [Suspect]
     Active Substance: HUMAN IMMUNOGLOBULIN G
     Dosage: UNK UNK, Q2WEEKS
     Route: 058
     Dates: start: 20170914
  3. CUVITRU [Suspect]
     Active Substance: HUMAN IMMUNOGLOBULIN G
     Dosage: 22 GRAM, Q2WEEKS
     Route: 058
     Dates: start: 20210130
  4. CUVITRU [Suspect]
     Active Substance: HUMAN IMMUNOGLOBULIN G
     Dosage: 250 MILLIGRAM/KILOGRAM
     Route: 058
     Dates: start: 20170914
  5. LOSARTAN [Concomitant]
     Active Substance: LOSARTAN
     Dosage: UNK
     Route: 065
  6. HEPATONE [Concomitant]
     Dosage: UNK
     Route: 065
  7. DICYCLOMINE CO [Concomitant]
     Dosage: UNK
     Route: 065
  8. VITAMIN D3 [Concomitant]
     Active Substance: CHOLECALCIFEROL
     Dosage: UNK
     Route: 065
  9. VITAMIN C [Concomitant]
     Active Substance: ASCORBIC ACID
     Dosage: UNK
     Route: 065
  10. COENZYME Q10 [Concomitant]
     Active Substance: DIETARY SUPPLEMENT\UBIDECARENONE
     Dosage: UNK
     Route: 065
  11. FISH OIL [Concomitant]
     Active Substance: FISH OIL
     Dosage: UNK
     Route: 065
  12. DIETARY SUPPLEMENT\PROBIOTICS [Concomitant]
     Active Substance: DIETARY SUPPLEMENT\PROBIOTICS
     Dosage: UNK
     Route: 065
  13. OMEGA-3 FISH OIL +VITAMIN D [Concomitant]
     Dosage: UNK
     Route: 065
  14. BETAINE [Concomitant]
     Active Substance: BETAINE
     Dosage: UNK
     Route: 065
  15. BERBERINE [Concomitant]
     Active Substance: BERBERINE
     Dosage: UNK
     Route: 065
  16. ACETAMINOPHEN [Concomitant]
     Active Substance: ACETAMINOPHEN
     Dosage: UNK
     Route: 065
  17. DIPHENHYDRAMINE [Concomitant]
     Active Substance: DIPHENHYDRAMINE
     Dosage: UNK
     Route: 065
  18. LIDOCAINE [Concomitant]
     Active Substance: LIDOCAINE
     Dosage: UNK
     Route: 065
  19. EPINEPHRINE [Concomitant]
     Active Substance: EPINEPHRINE
     Dosage: UNK
     Route: 065
  20. CEPHALEXIN [Concomitant]
     Active Substance: CEPHALEXIN
     Dosage: UNK
     Route: 065
  21. VITAMINS [Concomitant]
     Active Substance: VITAMINS
     Dosage: UNK
     Route: 065
  22. NIACINAMIDE [Concomitant]
     Active Substance: NIACINAMIDE
     Dosage: UNK
     Route: 065
  23. FOLIC ACID;VITAMIN B12 [Concomitant]
     Dosage: UNK
     Route: 065
  24. CALCIUM PLUS D3 [Concomitant]
     Dosage: UNK
     Route: 065
  25. DEGLYCYRRHIZINISED LIQUORICE [Concomitant]
     Dosage: UNK
     Route: 065
  26. AMLODIPINE MESYLATE [Concomitant]
     Active Substance: AMLODIPINE MESYLATE
     Dosage: UNK
     Route: 065
  27. VITAMINS [Concomitant]
     Active Substance: VITAMINS
     Dosage: UNK
     Route: 065
  28. MINERAL [Concomitant]
     Dosage: UNK
     Route: 065
  29. FERRACTIV [Concomitant]
     Dosage: UNK
     Route: 065
  30. PROPAFENONE [Concomitant]
     Active Substance: PROPAFENONE
     Dosage: UNK
     Route: 065
  31. METOPROLOL [Concomitant]
     Active Substance: METOPROLOL
     Dosage: UNK
     Route: 065
  32. LIOTHYRONINE [Concomitant]
     Active Substance: LIOTHYRONINE
     Dosage: UNK
     Route: 065
  33. DIGESTIVE ENZYMES [AMYLASE;CELLULASE;LIPASE;MALTASE;PROTEASE;SUCRASE;T [Concomitant]
     Dosage: UNK
     Route: 065
  34. XARELTO [Concomitant]
     Active Substance: RIVAROXABAN
     Dosage: UNK
     Route: 065
  35. METHYLCOBALAMIN [Concomitant]
     Active Substance: METHYLCOBALAMIN
     Dosage: UNK
     Route: 065
  36. RABEPRAZOLE [Concomitant]
     Active Substance: RABEPRAZOLE
     Dosage: UNK
     Route: 065
  37. MECLIZINE [Concomitant]
     Active Substance: MECLIZINE HYDROCHLORIDE
     Dosage: UNK
     Route: 065
  38. FUROSEMIDE [Concomitant]
     Active Substance: FUROSEMIDE
     Dosage: UNK
     Route: 065
  39. SYSTANE (HYPROMELLOSE 2910 (4000 MPA.S)) [Concomitant]
     Active Substance: HYPROMELLOSE 2910 (4000 MPA.S)
     Dosage: UNK
     Route: 065
  40. TRIAMCINOLONE [Concomitant]
     Active Substance: TRIAMCINOLONE
     Dosage: UNK
     Route: 065
  41. ACETONIDE DE FLUCLOROLONE [Concomitant]
     Dosage: UNK
     Route: 065
  42. HYDROCHLOROTHIAZIDE [Concomitant]
     Active Substance: HYDROCHLOROTHIAZIDE
     Dosage: UNK
     Route: 065
  43. KLOR-CON [Concomitant]
     Active Substance: POTASSIUM CHLORIDE
     Dosage: UNK
     Route: 065
  44. RETINOL [Concomitant]
     Active Substance: RETINOL
     Dosage: UNK
     Route: 065
  45. DOCUSATE SODIUM [Concomitant]
     Active Substance: DOCUSATE SODIUM
     Dosage: UNK
     Route: 065
  46. ZINC [Concomitant]
     Active Substance: ZINC
     Dosage: UNK
     Route: 065
  47. MAGNESIUM [Concomitant]
     Active Substance: MAGNESIUM
     Dosage: UNK
     Route: 065
  48. HOMOCYSTEINE FORMULA [Concomitant]
     Dosage: UNK
     Route: 065
  49. GOLD BOND ORIGINAL STRENGTH POWDER [Concomitant]
     Active Substance: MENTHOL\ZINC OXIDE
     Dosage: UNK
     Route: 065
  50. ALPHA LIPOIC ACID [Concomitant]
     Active Substance: .ALPHA.-LIPOIC ACID
     Dosage: UNK
     Route: 065
  51. CETIRIZINE HYDROCHLORIDE [Concomitant]
     Active Substance: CETIRIZINE HYDROCHLORIDE
     Dosage: UNK
     Route: 065
  52. TIROSINT [Concomitant]
     Active Substance: LEVOTHYROXINE SODIUM
     Dosage: UNK
     Route: 065
  53. ALDARA [Concomitant]
     Active Substance: IMIQUIMOD
     Dosage: UNK
     Route: 065
  54. DICYCLOMINE [Concomitant]
     Active Substance: DICYCLOMINE HYDROCHLORIDE
     Dosage: UNK
     Route: 065
  55. SYNERGY K [Concomitant]
     Dosage: UNK
     Route: 065
  56. FOLIC ACID [Concomitant]
     Active Substance: FOLIC ACID
     Dosage: UNK
     Route: 065
  57. IRON [Concomitant]
     Active Substance: IRON
     Dosage: UNK
     Route: 065
  58. PROBIOTICS NOS [Concomitant]
     Active Substance: PROBIOTICS NOS
     Dosage: UNK
     Route: 065
  59. DICLOMINE [DICLOFENAC SODIUM;PARACETAMOL] [Concomitant]
     Dosage: UNK
     Route: 065
  60. MINERAL OIL [Concomitant]
     Active Substance: MINERAL OIL
     Dosage: UNK
     Route: 065
  61. CALCIUM\CHOLECALCIFEROL [Concomitant]
     Active Substance: CALCIUM\CHOLECALCIFEROL
     Dosage: UNK
     Route: 065
  62. HYDROCHLOROTHIAZIDE [Concomitant]
     Active Substance: HYDROCHLOROTHIAZIDE
     Dosage: UNK
     Route: 065
  63. B COMPLEX PLUS VITAMIN C [Concomitant]
  64. VITAMIN B12 [Concomitant]
     Active Substance: CYANOCOBALAMIN
  65. LIOTHYRONINE SODIUM [Concomitant]
     Active Substance: LIOTHYRONINE SODIUM
  66. RABEPRAZOLE SODIUM [Concomitant]
     Active Substance: RABEPRAZOLE SODIUM
  67. MECLIZINE [Concomitant]
     Active Substance: MECLIZINE HYDROCHLORIDE
  68. AMLODIPINE BESYLATE [Concomitant]
     Active Substance: AMLODIPINE BESYLATE
  69. PROPAFENONE [Concomitant]
     Active Substance: PROPAFENONE
  70. POTASSIUM [Concomitant]
     Active Substance: POTASSIUM
  71. B-COMPLEX + VITAMIN C [Concomitant]
  72. DICYCLOMINE [Concomitant]
     Active Substance: DICYCLOMINE HYDROCHLORIDE
  73. GLYCYRRHIZA GLABRA\HERBALS [Concomitant]
     Active Substance: GLYCYRRHIZA GLABRA\HERBALS
  74. CALCIUM\CHOLECALCIFEROL [Concomitant]
     Active Substance: CALCIUM\CHOLECALCIFEROL
  75. CEPHALEXIN [Concomitant]
     Active Substance: CEPHALEXIN
  76. SYNERGY B [Concomitant]

REACTIONS (14)
  - Skin cancer [Unknown]
  - Neoplasm malignant [Unknown]
  - Atrial fibrillation [Unknown]
  - Basal cell carcinoma [Unknown]
  - Vulvovaginal dryness [Unknown]
  - Blood potassium decreased [Unknown]
  - Bladder disorder [Unknown]
  - Vertigo [Unknown]
  - Musculoskeletal pain [Unknown]
  - Tympanoplasty [Unknown]
  - Pain in extremity [Unknown]
  - Ear pain [Unknown]
  - Vulvovaginal mycotic infection [Unknown]
  - Eczema [Unknown]
